FAERS Safety Report 4361317-2 (Version None)
Quarter: 2004Q2

REPORT INFORMATION
  Report Type: 
  Country: None (occurrence: None)
  Receive Date: 20040520
  Receipt Date: 20040507
  Transmission Date: 20050107
  Serious: Yes (Other)
  Sender: FDA-Public Use
  Company Number: US-MERCK-0405USA00527

PATIENT
  Age: 52 Year
  Sex: Female

DRUGS (2)
  1. FOSAMAX [Suspect]
     Indication: OSTEOPENIA
     Route: 048
     Dates: start: 20020101, end: 20040301
  2. FOSAMAX [Suspect]
     Route: 048
     Dates: start: 20040401

REACTIONS (3)
  - COLON CANCER [None]
  - DYSPEPSIA [None]
  - THROAT TIGHTNESS [None]
